FAERS Safety Report 21074241 (Version 9)
Quarter: 2022Q4

REPORT INFORMATION
  Report Type: Report from Study
  Country: US (occurrence: None)
  Receive Date: 20220713
  Receipt Date: 20221107
  Transmission Date: 20230113
  Serious: Yes (Other)
  Sender: FDA-Public Use
  Company Number: US-ROCHE-3130795

PATIENT
  Age: 55 Year
  Sex: Male
  Weight: 117 kg

DRUGS (29)
  1. RANIBIZUMAB [Suspect]
     Active Substance: RANIBIZUMAB
     Indication: Diabetic retinal oedema
     Dosage: ^FREQUENCY OF REFILL OF THE IMPLANT: ONCE IN 24 WEEKS^?ON 29/JUN/2022, RECEIVED MOST RECENT DOSE OF
     Route: 050
     Dates: start: 20210407
  2. RANIBIZUMAB [Suspect]
     Active Substance: RANIBIZUMAB
  3. RANIBIZUMAB [Suspect]
     Active Substance: RANIBIZUMAB
  4. RANIBIZUMAB [Suspect]
     Active Substance: RANIBIZUMAB
  5. RANIBIZUMAB [Suspect]
     Active Substance: RANIBIZUMAB
  6. RANIBIZUMAB [Suspect]
     Active Substance: RANIBIZUMAB
  7. RANIBIZUMAB [Concomitant]
     Active Substance: RANIBIZUMAB
     Dosage: DOSE OF STUDY DRUG FIRST ADMINISTERED 6 MG/ML START DATE OF MOST RECENT DOSE OF STUDY DRUG?PRIOR TO
     Route: 050
     Dates: start: 20210608
  8. ALPRAZOLAM [Concomitant]
     Active Substance: ALPRAZOLAM
     Indication: Anxiety
     Dosage: 1 TABLET
     Route: 048
     Dates: start: 20210201
  9. TRULICITY [Concomitant]
     Active Substance: DULAGLUTIDE
     Indication: Type 2 diabetes mellitus
     Dosage: MEDICATION DOSE 1 MG/ML, EVERY WEEK
     Route: 058
     Dates: start: 20210122
  10. FLUOXETINE [Concomitant]
     Active Substance: FLUOXETINE HYDROCHLORIDE
     Indication: Depression
     Route: 048
     Dates: start: 20200918
  11. LASIX [Concomitant]
     Active Substance: FUROSEMIDE
     Route: 048
     Dates: start: 20200821
  12. GLIMEPIRIDE [Concomitant]
     Active Substance: GLIMEPIRIDE
     Indication: Type 2 diabetes mellitus
     Route: 048
     Dates: start: 20200828
  13. LANTUS SOLOSTAR [Concomitant]
     Active Substance: INSULIN GLARGINE
     Indication: Type 2 diabetes mellitus
     Dosage: MEDICATION DOSE 20 U
     Route: 058
     Dates: start: 20200903
  14. LOSARTAN [Concomitant]
     Active Substance: LOSARTAN
     Indication: Hypertension
     Route: 048
     Dates: start: 20210122
  15. METFORMIN [Concomitant]
     Active Substance: METFORMIN HYDROCHLORIDE
     Indication: Type 2 diabetes mellitus
     Route: 048
     Dates: start: 20200917
  16. LYRICA [Concomitant]
     Active Substance: PREGABALIN
     Indication: Neuralgia
     Route: 048
     Dates: start: 20210201
  17. ELIQUIS [Concomitant]
     Active Substance: APIXABAN
     Indication: Haemophilia
     Route: 048
     Dates: start: 20211001, end: 20220622
  18. ELIQUIS [Concomitant]
     Active Substance: APIXABAN
     Route: 048
     Dates: start: 20220630
  19. OFLOXACIN [Concomitant]
     Active Substance: OFLOXACIN
     Indication: Corneal abrasion
     Route: 047
     Dates: start: 20220602, end: 20220628
  20. OFLOXACIN [Concomitant]
     Active Substance: OFLOXACIN
     Indication: Corneal abrasion
     Route: 047
     Dates: start: 20220602, end: 20220628
  21. OFLOXACIN [Concomitant]
     Active Substance: OFLOXACIN
     Route: 047
     Dates: start: 20220628, end: 20220628
  22. OFLOXACIN [Concomitant]
     Active Substance: OFLOXACIN
     Route: 047
     Dates: start: 20220630, end: 20220706
  23. ERYTHROMYCIN [Concomitant]
     Active Substance: ERYTHROMYCIN
     Indication: Corneal abrasion
     Dosage: MEDICATION DOSE 1 OTHER
     Route: 047
     Dates: start: 20220602, end: 20220628
  24. ERYTHROMYCIN [Concomitant]
     Active Substance: ERYTHROMYCIN
     Route: 047
     Dates: start: 20220602, end: 20220628
  25. PREDNISOLONE [Concomitant]
     Active Substance: PREDNISOLONE
     Route: 047
     Dates: start: 20220628, end: 20220628
  26. PREDNISOLONE [Concomitant]
     Active Substance: PREDNISOLONE
     Route: 047
     Dates: start: 20220630, end: 20220706
  27. PREDNISOLONE [Concomitant]
     Active Substance: PREDNISOLONE
     Dates: start: 20220707, end: 20220713
  28. PREDNISOLONE [Concomitant]
     Active Substance: PREDNISOLONE
     Dates: start: 20220714, end: 20220720
  29. PREDNISOLONE [Concomitant]
     Active Substance: PREDNISOLONE
     Dates: start: 20220721, end: 20220727

REACTIONS (1)
  - Hyphaema [Recovered/Resolved]

NARRATIVE: CASE EVENT DATE: 20220630
